FAERS Safety Report 8301964-6 (Version None)
Quarter: 2012Q2

REPORT INFORMATION
  Report Type: 
  Country: None (occurrence: None)
  Receive Date: 20120420
  Receipt Date: 20120405
  Transmission Date: 20120825
  Serious: Yes (Other)
  Sender: FDA-Public Use
  Company Number: GB-WATSON-2012-06715

PATIENT
  Age: 26 Year
  Sex: Male

DRUGS (2)
  1. LEVETIRACETAM [Suspect]
     Indication: EPILEPSY
     Dosage: 250 MG, BID
     Route: 048
     Dates: start: 20120201, end: 20120301
  2. LAMICTAL [Concomitant]
     Indication: EPILEPSY
     Dosage: 100 MG, BID, ONGOING
     Route: 048
     Dates: start: 20070620

REACTIONS (2)
  - STATUS EPILEPTICUS [None]
  - PRODUCT SUBSTITUTION ISSUE [None]
